FAERS Safety Report 7496809-0 (Version None)
Quarter: 2011Q2

REPORT INFORMATION
  Report Type: 
  Country: None (occurrence: None)
  Receive Date: 20110523
  Receipt Date: 20110511
  Transmission Date: 20111010
  Serious: Yes (Hospitalization)
  Sender: FDA-Public Use
  Company Number: US-PFIZER INC-2011081093

PATIENT
  Age: 71 Year
  Sex: Male
  Weight: 89.5 kg

DRUGS (10)
  1. GLUCAGON [Concomitant]
  2. TORISEL [Suspect]
     Indication: RENAL CELL CARCINOMA
     Dosage: 25 MG,OVER 30 MINS DAY 1, 8, 15 AND 22 EVERY 28 DAYS
     Route: 042
     Dates: start: 20100615, end: 20110325
  3. BEVACIZUMAB [Suspect]
     Indication: RENAL CELL CARCINOMA
     Dosage: 10 MG/KG, OVER 30-90 MINS ON DAYS 1 AND 15 EVERY 28 DAYS
     Route: 042
     Dates: start: 20100615, end: 20110325
  4. ACETAMINOPHEN [Concomitant]
  5. ASPIRIN [Concomitant]
  6. PEPCID [Concomitant]
  7. PROGRAF [Concomitant]
  8. HYDRALAZINE [Concomitant]
  9. ZOCOR [Concomitant]
  10. ONDASETRON [Concomitant]

REACTIONS (1)
  - LEFT VENTRICULAR DYSFUNCTION [None]
